FAERS Safety Report 9255471 (Version 1)
Quarter: 2013Q2

REPORT INFORMATION
  Report Type: Spontaneous
  Country: US (occurrence: None)
  Receive Date: 20130423
  Receipt Date: 20130423
  Transmission Date: 20140414
  Serious: Yes (Life-Threatening, Hospitalization)
  Sender: FDA-Public Use
  Company Number: None

PATIENT
  Age: 34 Year
  Sex: Male
  Weight: 99.2 kg

DRUGS (2)
  1. CYMBALTA 60MG LILLY [Suspect]
     Indication: DEPRESSION
     Dosage: 3-6 MONTHS AT LEAST
     Route: 048
  2. METHIMAZOLE [Suspect]
     Indication: HYPERTHYROIDISM
     Route: 048

REACTIONS (7)
  - Respiratory disorder [None]
  - Cyanosis [None]
  - Tachycardia [None]
  - Ventricular fibrillation [None]
  - Cardiac arrest [None]
  - Atrial fibrillation [None]
  - Bundle branch block left [None]
